FAERS Safety Report 25631717 (Version 1)
Quarter: 2025Q3

REPORT INFORMATION
  Report Type: Spontaneous
  Country: JP (occurrence: JP)
  Receive Date: 20250801
  Receipt Date: 20250801
  Transmission Date: 20251020
  Serious: Yes (Other)
  Sender: RADIUS PHARM
  Company Number: JP-RADIUS HEALTH INC.-JP-RADIUS-25050383

PATIENT
  Age: 76 Year
  Sex: Female

DRUGS (4)
  1. ABALOPARATIDE [Suspect]
     Active Substance: ABALOPARATIDE
     Indication: Osteoporosis
     Dosage: 80 MICROGRAM, QD
     Route: 058
     Dates: start: 20240712, end: 20250702
  2. ELDECALCITOL [Suspect]
     Active Substance: ELDECALCITOL
     Indication: Osteoporosis
     Route: 048
     Dates: start: 2022, end: 20250702
  3. EDOXABAN TOSYLATE [Concomitant]
     Active Substance: EDOXABAN TOSYLATE
     Indication: Atrial fibrillation
  4. ATORVASTATIN [Concomitant]
     Active Substance: ATORVASTATIN
     Indication: Atrial fibrillation

REACTIONS (2)
  - Renal impairment [Recovered/Resolved]
  - Blood uric acid increased [Recovered/Resolved]

NARRATIVE: CASE EVENT DATE: 20241221
